FAERS Safety Report 5579807-3 (Version None)
Quarter: 2008Q1

REPORT INFORMATION
  Report Type: 
  Country: None (occurrence: None)
  Receive Date: 20080102
  Receipt Date: 20071221
  Transmission Date: 20080703
  Serious: Yes (Other)
  Sender: FDA-Public Use
  Company Number: US-PFIZER INC-2007107696

PATIENT
  Age: 19 Year
  Sex: Female

DRUGS (3)
  1. CYTOTEC [Suspect]
     Indication: ABORTION
  2. DOXYCYCLINE [Suspect]
     Indication: ABORTION
  3. MOTRIN [Suspect]
     Indication: ABORTION

REACTIONS (5)
  - ABORTION [None]
  - OFF LABEL USE [None]
  - POSTPARTUM DEPRESSION [None]
  - PYREXIA [None]
  - VOMITING [None]
